FAERS Safety Report 8908493 (Version 6)
Quarter: 2013Q2

REPORT INFORMATION
  Report Type: Spontaneous
  Country: US (occurrence: US)
  Receive Date: 20121114
  Receipt Date: 20130502
  Transmission Date: 20140414
  Serious: Yes (Hospitalization)
  Sender: FDA-Public Use
  Company Number: US-UCBSA-070718

PATIENT
  Age: 48 Year
  Sex: Female
  Weight: 50.45 kg

DRUGS (4)
  1. CIMZIA [Suspect]
     Indication: CROHN^S DISEASE
     Route: 058
     Dates: start: 20121025, end: 201211
  2. CIMZIA [Suspect]
     Indication: CROHN^S DISEASE
     Dates: start: 201211
  3. ZOLOFT [Concomitant]
  4. PENTASA [Concomitant]

REACTIONS (18)
  - Metabolic acidosis [Recovering/Resolving]
  - Migraine [Recovered/Resolved]
  - Abdominal pain [Recovered/Resolved]
  - Asthenia [Recovered/Resolved]
  - Arthralgia [Recovered/Resolved]
  - Pyrexia [Recovered/Resolved]
  - Thrombosis [Recovered/Resolved]
  - Dyspnoea [Recovered/Resolved]
  - Crohn^s disease [Recovered/Resolved]
  - Malnutrition [Recovered/Resolved]
  - Electrolyte imbalance [Recovered/Resolved]
  - Malaise [Recovered/Resolved]
  - Diarrhoea [Recovered/Resolved]
  - Pain [Recovered/Resolved]
  - Dehydration [Not Recovered/Not Resolved]
  - Dizziness [Recovered/Resolved]
  - Vision blurred [Recovered/Resolved]
  - Muscular weakness [Recovered/Resolved]
